FAERS Safety Report 16722555 (Version 2)
Quarter: 2019Q4

REPORT INFORMATION
  Report Type: Spontaneous
  Country: US (occurrence: US)
  Receive Date: 20190820
  Receipt Date: 20191014
  Transmission Date: 20200122
  Serious: No
  Sender: FDA-Public Use
  Company Number: US-ELI_LILLY_AND_COMPANY-US201908003331

PATIENT
  Sex: Female

DRUGS (1)
  1. TALTZ [Suspect]
     Active Substance: IXEKIZUMAB
     Indication: PSORIASIS
     Dosage: UNK, UNKNOWN
     Route: 065
     Dates: start: 201811, end: 20190624

REACTIONS (11)
  - Nasal discomfort [Recovered/Resolved]
  - Lacrimal disorder [Recovered/Resolved]
  - Chapped lips [Recovered/Resolved]
  - Lip swelling [Recovered/Resolved]
  - Sneezing [Recovered/Resolved]
  - Cheilitis [Recovered/Resolved]
  - Immune system disorder [Recovered/Resolved]
  - Conjunctival irritation [Recovered/Resolved]
  - Hypersensitivity [Recovered/Resolved]
  - Nasal congestion [Recovered/Resolved]
  - Nasal dryness [Recovered/Resolved]

NARRATIVE: CASE EVENT DATE: 201904
